FAERS Safety Report 9535806 (Version 2)
Quarter: 2013Q4

REPORT INFORMATION
  Report Type: Spontaneous
  Country: CH (occurrence: CH)
  Receive Date: 20130919
  Receipt Date: 20131024
  Transmission Date: 20140711
  Serious: Yes (Hospitalization)
  Sender: FDA-Public Use
  Company Number: CH-BRISTOL-MYERS SQUIBB COMPANY-19361641

PATIENT
  Age: 68 Year
  Sex: Male

DRUGS (4)
  1. YERVOY [Suspect]
     Indication: MALIGNANT MELANOMA
     Dosage: INJ?LAST ADMINISTRATION 2AUG2013?3 DOSES
     Route: 041
     Dates: start: 201306, end: 20130802
  2. SINTROM [Suspect]
     Indication: PULMONARY EMBOLISM
     Dosage: TABS
     Route: 048
     Dates: start: 2011, end: 20130807
  3. HYDROXYCARBAMIDE [Concomitant]
     Route: 048
     Dates: start: 2009
  4. PERINDOPRIL [Concomitant]
     Indication: HYPERTENSION
     Dosage: TABS
     Route: 048

REACTIONS (9)
  - Colitis [Recovering/Resolving]
  - Rectal haemorrhage [Recovering/Resolving]
  - Anaemia [Not Recovered/Not Resolved]
  - Hypocoagulable state [Unknown]
  - Weight decreased [Not Recovered/Not Resolved]
  - Large intestine perforation [Unknown]
  - Peritonitis [Unknown]
  - Klebsiella infection [Unknown]
  - Enterococcal infection [Unknown]
